FAERS Safety Report 7725956-0 (Version None)
Quarter: 2011Q3

REPORT INFORMATION
  Report Type: 
  Country: None (occurrence: None)
  Receive Date: 20110902
  Receipt Date: 20110822
  Transmission Date: 20111222
  Serious: Yes (Hospitalization)
  Sender: FDA-Public Use
  Company Number: US-ELI_LILLY_AND_COMPANY-US201010003282

PATIENT
  Sex: Female

DRUGS (11)
  1. PREVACID [Concomitant]
  2. HYDROCORTISONE [Concomitant]
     Indication: ADDISON'S DISEASE
     Dosage: 40 MG, DAILY (1/D)
  3. SERTRALINE HYDROCHLORIDE [Concomitant]
  4. AMLODIPINE BESYLATE AND BENAZEPRIL HCL [Concomitant]
  5. FORTEO [Suspect]
     Dosage: 20 UG, QD
  6. LOTRIL                             /00574902/ [Concomitant]
  7. PERCOCET [Concomitant]
  8. FORTEO [Suspect]
     Indication: OSTEOPOROSIS
     Dosage: 20 UG, DAILY (1/D)
     Dates: start: 20100709
  9. ZOLOFT [Concomitant]
     Dosage: 100 MG, DAILY (1/D)
  10. FLORINEF [Concomitant]
     Dosage: 0.1 MG, DAILY (1/D)
  11. XALATAN [Concomitant]
     Indication: GLAUCOMA

REACTIONS (3)
  - SCIATICA [None]
  - PATHOLOGICAL FRACTURE [None]
  - PAIN IN EXTREMITY [None]
